FAERS Safety Report 5071120-6 (Version None)
Quarter: 2006Q3

REPORT INFORMATION
  Report Type: 
  Country: None (occurrence: None)
  Receive Date: 20060804
  Receipt Date: 20060220
  Transmission Date: 20061208
  Serious: Yes (Other)
  Sender: FDA-Public Use
  Company Number: US-GLAXOSMITHKLINE-A0594295A

PATIENT
  Age: 54 Year
  Sex: Male

DRUGS (3)
  1. NICORETTE [Suspect]
     Dosage: 4MG SEE DOSAGE TEXT
  2. NICODERM CQ [Suspect]
  3. NICORETTE [Suspect]
     Dosage: 4MG UNKNOWN

REACTIONS (5)
  - APPLICATION SITE DERMATITIS [None]
  - APPLICATION SITE REACTION [None]
  - BLOOD GLUCOSE INCREASED [None]
  - DRUG ABUSER [None]
  - INTENTIONAL DRUG MISUSE [None]
